FAERS Safety Report 7706646-7 (Version None)
Quarter: 2011Q3

REPORT INFORMATION
  Report Type: 
  Country: None (occurrence: None)
  Receive Date: 20110824
  Receipt Date: 20110816
  Transmission Date: 20111222
  Serious: Yes (Hospitalization)
  Sender: FDA-Public Use
  Company Number: US-JNJFOC-20110304618

PATIENT

DRUGS (3)
  1. REMICADE [Suspect]
     Route: 042
     Dates: start: 20050512
  2. REMICADE [Suspect]
     Indication: CROHN'S DISEASE
     Route: 042
     Dates: start: 20070227
  3. REMICADE [Suspect]
     Route: 042
     Dates: start: 20070401

REACTIONS (1)
  - CROHN'S DISEASE [None]
